FAERS Safety Report 9218815 (Version 5)
Quarter: 2014Q1

REPORT INFORMATION
  Report Type: Report from Study
  Country: JP (occurrence: JP)
  Receive Date: 20130409
  Receipt Date: 20140312
  Transmission Date: 20141002
  Serious: Yes (Death, Life-Threatening)
  Sender: FDA-Public Use
  Company Number: JP-JNJFOC-20130403587

PATIENT
  Age: 76 Year
  Sex: Female
  Weight: 66 kg

DRUGS (10)
  1. GOLIMUMAB [Suspect]
     Indication: RHEUMATOID ARTHRITIS
     Route: 058
     Dates: start: 20121226, end: 20130319
  2. METHOTREXATE [Suspect]
     Indication: RHEUMATOID ARTHRITIS
     Route: 048
     Dates: end: 201303
  3. SELBEX [Concomitant]
     Indication: PROPHYLAXIS
     Route: 048
  4. FERROMIA [Concomitant]
     Indication: IRON DEFICIENCY ANAEMIA
     Route: 048
  5. ALOSENN [Concomitant]
     Indication: CONSTIPATION
     Route: 048
  6. LASIX [Concomitant]
     Indication: OEDEMA PERIPHERAL
  7. OMEPRAL [Concomitant]
     Indication: PROPHYLAXIS
  8. LOXONIN [Concomitant]
     Indication: RHEUMATOID ARTHRITIS
     Dates: end: 20130328
  9. PREDONINE [Concomitant]
     Indication: RHEUMATOID ARTHRITIS
     Route: 048
     Dates: end: 20130328
  10. PREDNISOLONE ACETATE [Concomitant]
     Indication: RHEUMATOID ARTHRITIS
     Dates: start: 20130329, end: 20130413

REACTIONS (6)
  - Multi-organ failure [Fatal]
  - Infectious pleural effusion [Not Recovered/Not Resolved]
  - Pneumococcal infection [Not Recovered/Not Resolved]
  - Cellulitis [Not Recovered/Not Resolved]
  - Necrotising fasciitis [Not Recovered/Not Resolved]
  - Staphylococcus test positive [Not Recovered/Not Resolved]
